FAERS Safety Report 8619879-2 (Version None)
Quarter: 2012Q3

REPORT INFORMATION
  Report Type: 
  Country: None (occurrence: None)
  Receive Date: 20120824
  Receipt Date: 20120821
  Transmission Date: 20120928
  Serious: No
  Sender: FDA-Public Use
  Company Number: US-PFIZER INC-2012206071

PATIENT
  Age: 41 Year
  Sex: Male
  Weight: 92.971 kg

DRUGS (2)
  1. CHANTIX [Suspect]
     Indication: SMOKING CESSATION THERAPY
     Dosage: 0.5 MG, DAILY
     Route: 048
     Dates: start: 20120201
  2. CHANTIX [Suspect]
     Dosage: UNK
     Route: 048
     Dates: end: 20120101

REACTIONS (1)
  - DEPRESSION [None]
